FAERS Safety Report 5064691-7 (Version None)
Quarter: 2006Q3

REPORT INFORMATION
  Report Type: 
  Country: None (occurrence: None)
  Receive Date: 20060728
  Receipt Date: 20060531
  Transmission Date: 20061208
  Serious: Yes (Other)
  Sender: FDA-Public Use
  Company Number: AR-GLAXOSMITHKLINE-B0426448A

PATIENT
  Age: 19 Year
  Sex: Female
  Weight: 48 kg

DRUGS (1)
  1. PAROXETINE HCL [Suspect]
     Indication: SOCIAL PHOBIA
     Route: 048
     Dates: start: 20060502, end: 20060526

REACTIONS (2)
  - ABORTION SPONTANEOUS [None]
  - DRUG EXPOSURE DURING PREGNANCY [None]
